FAERS Safety Report 10884754 (Version 2)
Quarter: 2015Q2

REPORT INFORMATION
  Report Type: Spontaneous
  Country: US (occurrence: US)
  Receive Date: 20150304
  Receipt Date: 20150416
  Transmission Date: 20150821
  Serious: No
  Sender: FDA-Public Use
  Company Number: US-FRI-1000074960

PATIENT
  Age: 39 Year
  Sex: Male

DRUGS (2)
  1. SAPHRIS [Suspect]
     Active Substance: ASENAPINE MALEATE
     Indication: BIPOLAR DISORDER
     Dosage: 40 MG
  2. SAPHRIS [Suspect]
     Active Substance: ASENAPINE MALEATE
     Dosage: 5 MG
     Dates: start: 20150402

REACTIONS (6)
  - Off label use [Recovered/Resolved]
  - Swollen tongue [Recovered/Resolved]
  - Protrusion tongue [Recovered/Resolved]
  - Insomnia [Recovered/Resolved]
  - Weight increased [Recovered/Resolved]
  - Restlessness [Not Recovered/Not Resolved]

NARRATIVE: CASE EVENT DATE: 201504
